FAERS Safety Report 19607678 (Version 2)
Quarter: 2021Q3

REPORT INFORMATION
  Report Type: Spontaneous
  Country: ES (occurrence: ES)
  Receive Date: 20210726
  Receipt Date: 20210818
  Transmission Date: 20211014
  Serious: Yes (Hospitalization, Other)
  Sender: FDA-Public Use
  Company Number: ES-SA-2021SA243316

PATIENT
  Age: 19 Year
  Sex: Male

DRUGS (9)
  1. THYMOGLOBULIN [Suspect]
     Active Substance: LAPINE T-LYMPHOCYTE IMMUNE GLOBULIN
     Indication: PROPHYLAXIS AGAINST TRANSPLANT REJECTION
     Dosage: 70 MG, CONT (DAY 1)
     Route: 042
     Dates: start: 20210709
  2. THYMOGLOBULIN [Suspect]
     Active Substance: LAPINE T-LYMPHOCYTE IMMUNE GLOBULIN
     Dosage: 150 MG, CONT (DAY 2?5)
     Route: 042
     Dates: end: 20210714
  3. ONDANSETRON [Concomitant]
     Active Substance: ONDANSETRON
     Indication: PROPHYLAXIS AGAINST TRANSPLANT REJECTION
     Dosage: 8 MG (8 MG/6?8 H)
     Route: 042
     Dates: start: 20210709, end: 20210715
  4. SEGURIL [Concomitant]
     Active Substance: FUROSEMIDE
     Dosage: UNK MG
  5. ACICLOVIR [Concomitant]
     Active Substance: ACYCLOVIR
     Indication: PROPHYLAXIS AGAINST TRANSPLANT REJECTION
     Dosage: 750 MG/8 H
     Route: 042
     Dates: start: 20210709, end: 20210715
  6. CYCLOPHOSPHAMIDE. [Concomitant]
     Active Substance: CYCLOPHOSPHAMIDE
     Indication: PROPHYLAXIS AGAINST TRANSPLANT REJECTION
     Dosage: 3600 MG/24 H
     Route: 042
     Dates: start: 20210710, end: 20210713
  7. COTRIMOXAZOL [Concomitant]
     Active Substance: SULFAMETHOXAZOLE\TRIMETHOPRIM
     Indication: PROPHYLAXIS AGAINST TRANSPLANT REJECTION
     Dosage: 160 MG/12 H
     Route: 042
     Dates: start: 20210709, end: 20210714
  8. SEGURIL [Concomitant]
     Active Substance: FUROSEMIDE
  9. OMEPRAZOL [OMEPRAZOLE] [Concomitant]
     Active Substance: OMEPRAZOLE
     Indication: PROPHYLAXIS AGAINST TRANSPLANT REJECTION
     Dosage: 40 MG, CONT (40 MG/24 H)
     Route: 042
     Dates: start: 20210709, end: 20210715

REACTIONS (10)
  - Tremor [Recovered/Resolved]
  - Weight increased [Recovered/Resolved]
  - Abdominal distension [Recovered/Resolved]
  - Acute kidney injury [Recovered/Resolved]
  - Ascites [Recovered/Resolved]
  - Anuria [Recovered/Resolved]
  - Localised oedema [Recovered/Resolved]
  - Renal impairment [Unknown]
  - Fluid overload [Recovered/Resolved]
  - Hypertension [Recovered/Resolved]

NARRATIVE: CASE EVENT DATE: 202107
